FAERS Safety Report 4466785-3 (Version None)
Quarter: 2004Q3

REPORT INFORMATION
  Report Type: 
  Country: None (occurrence: None)
  Receive Date: 20040930
  Receipt Date: 20040924
  Transmission Date: 20050211
  Serious: Yes (Hospitalization)
  Sender: FDA-Public Use
  Company Number: 8007367

PATIENT
  Age: 67 Year
  Sex: Male

DRUGS (9)
  1. KEPPRA [Suspect]
     Indication: CONVULSION
     Dosage: 1500 MG 2/D PO
     Route: 048
     Dates: start: 20040601
  2. TEMODAR [Suspect]
     Indication: GLIOBLASTOMA
     Dosage: NI /D PO
     Route: 048
     Dates: start: 20040201, end: 20040201
  3. TEMOZOLOMIDE [Suspect]
     Indication: GLIOBLASTOMA
     Dosage: NI D/ PO
     Route: 048
     Dates: start: 20040301
  4. PHENOBARBITAL TAB [Suspect]
     Indication: CONVULSION
     Dosage: NI PO
     Route: 048
  5. METOPROLOL [Concomitant]
  6. ALBUTEROL [Concomitant]
  7. DEXAMETHASONE [Concomitant]
  8. COLACE [Concomitant]
  9. SENNA [Concomitant]

REACTIONS (3)
  - ANAEMIA [None]
  - APLASIA PURE RED CELL [None]
  - THROMBOCYTOPENIA [None]
